FAERS Safety Report 19261407 (Version 1)
Quarter: 2021Q2

REPORT INFORMATION
  Report Type: Report from Study
  Country: IN (occurrence: IN)
  Receive Date: 20210515
  Receipt Date: 20210515
  Transmission Date: 20210717
  Serious: Yes (Death)
  Sender: FDA-Public Use
  Company Number: NVSC2021IN109124

PATIENT
  Age: 41 Year
  Sex: Male

DRUGS (2)
  1. TACSANT [Suspect]
     Active Substance: TACROLIMUS
     Indication: RENAL TRANSPLANT
     Dosage: 1.5 MG, BID
     Route: 065
     Dates: start: 20170719
  2. NEORAL [Suspect]
     Active Substance: CYCLOSPORINE
     Indication: RENAL TRANSPLANT
     Dosage: 180 MG, BID
     Route: 065
     Dates: start: 20170719

REACTIONS (1)
  - Death [Fatal]

NARRATIVE: CASE EVENT DATE: 20210407
